FAERS Safety Report 24344703 (Version 1)
Quarter: 2024Q3

REPORT INFORMATION
  Report Type: Other
  Country: US (occurrence: US)
  Receive Date: 20240920
  Receipt Date: 20240920
  Transmission Date: 20241016
  Serious: Yes (Other)
  Sender: Alora Pharma
  Company Number: US-ACELLA PHARMACEUTICALS, LLC-2024ALO00306

PATIENT
  Age: 33 Year
  Sex: Female
  Weight: 48.98 kg

DRUGS (2)
  1. METHYLPHENIDATE HYDROCHLORIDE [Suspect]
     Active Substance: METHYLPHENIDATE HYDROCHLORIDE
     Indication: Attention deficit hyperactivity disorder
     Dosage: 36 MG, 2X/DAY (ONE WHEN SHE WAKES UP ON AND 1 AROUND NOON)
     Route: 048
  2. METHYLPHENIDATE HYDROCHLORIDE [Suspect]
     Active Substance: METHYLPHENIDATE HYDROCHLORIDE
     Dosage: 36 MG, 2X/DAY (ONE WHEN SHE WAKES UP ON AND 1 AROUND NOON)
     Route: 048
     Dates: start: 202405, end: 202405

REACTIONS (19)
  - Hypertension [Recovered/Resolved]
  - Pseudoparalysis [Recovered/Resolved]
  - Aphasia [Recovered/Resolved]
  - Anhedonia [Recovered/Resolved]
  - Mental impairment [Recovered/Resolved]
  - Feeling of despair [Recovered/Resolved]
  - Sensory overload [Recovered/Resolved]
  - Hangover [Unknown]
  - Heart rate increased [Recovered/Resolved]
  - Agitation [Recovered/Resolved]
  - Mydriasis [Recovered/Resolved]
  - Muscle tightness [Recovered/Resolved]
  - Tremor [Recovered/Resolved]
  - Somnolence [Recovered/Resolved]
  - Fatigue [Recovered/Resolved]
  - Depressed mood [Recovered/Resolved]
  - Product formulation issue [Recovered/Resolved]
  - Drug effect faster than expected [Recovered/Resolved]
  - Product substitution issue [Recovered/Resolved]

NARRATIVE: CASE EVENT DATE: 20240501
